FAERS Safety Report 5728800-6 (Version None)
Quarter: 2008Q2

REPORT INFORMATION
  Report Type: 
  Country: None (occurrence: None)
  Receive Date: 20080430
  Receipt Date: 20080418
  Transmission Date: 20081010
  Serious: Yes (Life-Threatening, Other)
  Sender: FDA-Public Use
  Company Number: 2008010125

PATIENT
  Age: 74 Year
  Sex: Female

DRUGS (2)
  1. MINOXIDIL [Suspect]
     Dosage: 2%; FEW WEEKS
  2. AUGMENTIN [Suspect]
     Dosage: 1 G

REACTIONS (2)
  - ANAPHYLACTIC SHOCK [None]
  - OVERDOSE [None]
